FAERS Safety Report 8032606-5 (Version None)
Quarter: 2011Q4

REPORT INFORMATION
  Report Type: 
  Country: None (occurrence: None)
  Receive Date: 20111202
  Receipt Date: 20101116
  Transmission Date: 20120403
  Serious: Yes (Other)
  Sender: FDA-Public Use
  Company Number: WAES 1011USA01991

PATIENT
  Age: 83 Year
  Sex: Female
  Weight: 53.0709 kg

DRUGS (4)
  1. ACCUPRIL [Concomitant]
  2. DIOVAN HCT [Concomitant]
  3. FOSAMAX [Suspect]
     Indication: OSTEOPOROSIS PROPHYLAXIS
     Dosage: 70 MG/WKY/PO
     Route: 048
     Dates: start: 20040601, end: 20071201
  4. LIPITOR [Concomitant]

REACTIONS (16)
  - WEIGHT DECREASED [None]
  - TOOTH DISORDER [None]
  - ATAXIA [None]
  - BONE FISTULA [None]
  - HYPERSENSITIVITY [None]
  - ABSCESS ORAL [None]
  - OSTEONECROSIS OF JAW [None]
  - IMPAIRED HEALING [None]
  - RENAL FAILURE CHRONIC [None]
  - VITAMIN D DEFICIENCY [None]
  - DIVERTICULUM [None]
  - TREATMENT NONCOMPLIANCE [None]
  - TOOTH FRACTURE [None]
  - COLONIC POLYP [None]
  - DIABETIC NEPHROPATHY [None]
  - GLAUCOMA [None]
